FAERS Safety Report 9712385 (Version 1)
Quarter: 2013Q4

REPORT INFORMATION
  Report Type: Spontaneous
  Country: US (occurrence: US)
  Receive Date: 20131126
  Receipt Date: 20131126
  Transmission Date: 20140711
  Serious: No
  Sender: FDA-Public Use
  Company Number: US-BRISTOL-MYERS SQUIBB COMPANY-18868083

PATIENT
  Age: 68 Year
  Sex: Male
  Weight: 117.91 kg

DRUGS (4)
  1. BYDUREON [Suspect]
  2. METFORMIN HCL [Suspect]
  3. NOVOLIN 70/30 [Suspect]
     Dosage: 1DF:75UNITS/SQ INJ QAM 90UNITS/SQ INJ QPM
     Route: 058
  4. NOVOLIN [Suspect]

REACTIONS (3)
  - Blood glucose increased [Unknown]
  - Injection site extravasation [Unknown]
  - Injection site haemorrhage [Unknown]
